FAERS Safety Report 23648446 (Version 1)
Quarter: 2024Q1

REPORT INFORMATION
  Report Type: Spontaneous
  Country: US (occurrence: US)
  Receive Date: 20240319
  Receipt Date: 20240319
  Transmission Date: 20240410
  Serious: No
  Sender: FDA-Public Use
  Company Number: US-MYLANLABS-2024M1018825

PATIENT
  Sex: Female

DRUGS (1)
  1. BREYNA [Suspect]
     Active Substance: BUDESONIDE\FORMOTEROL FUMARATE
     Indication: Asthma
     Dosage: 160/4.5 MICROGRAM, BID (TWO PUFFS IN THE MORNING AND EVENING)
     Route: 055
     Dates: start: 20240223

REACTIONS (4)
  - Device difficult to use [Unknown]
  - Product delivery mechanism issue [Unknown]
  - Device mechanical issue [Unknown]
  - Product size issue [Unknown]

NARRATIVE: CASE EVENT DATE: 20240201
